FAERS Safety Report 11193074 (Version 1)
Quarter: 2015Q2

REPORT INFORMATION
  Report Type: Spontaneous
  Country: US (occurrence: None)
  Receive Date: 20150615
  Receipt Date: 20150615
  Transmission Date: 20150821
  Serious: Yes (Hospitalization)
  Sender: FDA-Public Use
  Company Number: None

PATIENT
  Age: 61 Year
  Sex: Female
  Weight: 70.5 kg

DRUGS (1)
  1. LISINOPRIL. [Suspect]
     Active Substance: LISINOPRIL
     Route: 048
     Dates: start: 20140407, end: 20150511

REACTIONS (8)
  - Type 2 diabetes mellitus [None]
  - Hypertension [None]
  - Acute kidney injury [None]
  - Hyperkalaemia [None]
  - Polyuria [None]
  - Hypophagia [None]
  - Diarrhoea [None]
  - Blood creatinine increased [None]

NARRATIVE: CASE EVENT DATE: 20150511
